FAERS Safety Report 5201767-5 (Version None)
Quarter: 2007Q1

REPORT INFORMATION
  Report Type: 
  Country: None (occurrence: None)
  Receive Date: 20070104
  Receipt Date: 20061219
  Transmission Date: 20070707
  Serious: Yes (Hospitalization)
  Sender: FDA-Public Use
  Company Number: A-JP2006-13749

PATIENT
  Age: 76 Year
  Sex: Female
  Weight: 40 kg

DRUGS (4)
  1. TRACLEER [Suspect]
     Indication: PULMONARY HYPERTENSION
     Dosage: 62.5 MG, BID; ORAL, 62.5 MG, QD; ORAL
     Route: 048
     Dates: start: 20060801, end: 20060801
  2. TRACLEER [Suspect]
     Indication: PULMONARY HYPERTENSION
     Dosage: 62.5 MG, BID; ORAL, 62.5 MG, QD; ORAL
     Route: 048
     Dates: start: 20060101, end: 20060901
  3. BERAPROST SODIUM (BERAPROS SODIUM) [Suspect]
  4. LEVOTHYROXINE SODIUM [Concomitant]

REACTIONS (3)
  - ALANINE AMINOTRANSFERASE INCREASED [None]
  - ASPARTATE AMINOTRANSFERASE INCREASED [None]
  - BLOOD ALKALINE PHOSPHATASE INCREASED [None]
